FAERS Safety Report 20933144 (Version 2)
Quarter: 2022Q3

REPORT INFORMATION
  Report Type: Spontaneous
  Country: US (occurrence: US)
  Receive Date: 20220608
  Receipt Date: 20220715
  Transmission Date: 20221027
  Serious: Yes (Other)
  Sender: FDA-Public Use
  Company Number: US-PFIZER INC-202200798979

PATIENT
  Age: 5 Year
  Sex: Female
  Weight: 26.31 kg

DRUGS (1)
  1. GENOTROPIN [Suspect]
     Active Substance: SOMATROPIN
     Indication: Dwarfism
     Dosage: 0.8 MG, 1X/DAY (0.8MG INJECTED NIGHTLY)
     Dates: start: 2015

REACTIONS (3)
  - Autism spectrum disorder [Unknown]
  - Anxiety [Unknown]
  - Device use issue [Unknown]

NARRATIVE: CASE EVENT DATE: 20180101
